FAERS Safety Report 24591464 (Version 4)
Quarter: 2024Q4

REPORT INFORMATION
  Report Type: Spontaneous
  Country: IL (occurrence: IL)
  Receive Date: 20241108
  Receipt Date: 20241122
  Transmission Date: 20250115
  Serious: Yes (Hospitalization, Other)
  Sender: BAXTER
  Company Number: IL-BAXTER-2024BAX021200

PATIENT
  Age: 77 Year
  Sex: Male
  Weight: 86.5 kg

DRUGS (50)
  1. DOXORUBICIN [Suspect]
     Active Substance: DOXORUBICIN
     Indication: Diffuse large B-cell lymphoma stage IV
     Dosage: 50 MG/M2, EVERY 3-WEEK, AS A PART OF R-CHOP REGIMEN, C1D1 - C3D1
     Route: 042
     Dates: start: 20240617, end: 20240910
  2. CYCLOPHOSPHAMIDE [Suspect]
     Active Substance: CYCLOPHOSPHAMIDE
     Indication: Diffuse large B-cell lymphoma stage IV
     Dosage: 750 MG/M2, EVERY 3-WEEK, AS A PART OF R-CHOP REGIMEN, ONGOING, C1D1 - C3D1
     Route: 042
     Dates: start: 20240617, end: 20240910
  3. RITUXIMAB [Suspect]
     Active Substance: RITUXIMAB
     Indication: Diffuse large B-cell lymphoma stage IV
     Dosage: 375 MG/M2, EVERY 3-WEEK (AS A PART OF R-CHOP REGIMEN, ONGOING, C1D1 - C3D1
     Route: 042
     Dates: start: 20240617, end: 20240910
  4. EPCORITAMAB [Suspect]
     Active Substance: EPCORITAMAB
     Indication: Diffuse large B-cell lymphoma stage IV
     Dosage: 0.16 MG PRIMING DOSE ON C1D1,WEEKLY, DUOBODY-CD3XCD20
     Route: 058
     Dates: start: 20240617, end: 20240617
  5. EPCORITAMAB [Suspect]
     Active Substance: EPCORITAMAB
     Dosage: 0.16 MG RE -PRIMING DOSE,RP1D1
     Route: 058
     Dates: start: 20240630, end: 20240630
  6. EPCORITAMAB [Suspect]
     Active Substance: EPCORITAMAB
     Dosage: 0.8 MG, RE-PRIME DAY 8; RP1D8
     Route: 058
     Dates: start: 20240708, end: 20240708
  7. EPCORITAMAB [Suspect]
     Active Substance: EPCORITAMAB
     Dosage: 48 MG (FULL DOSE), RE-PRIME DAY 8; RP1D15-C2D1
     Route: 058
     Dates: start: 20240722, end: 20241013
  8. EPCORITAMAB [Suspect]
     Active Substance: EPCORITAMAB
     Dosage: 48 MG, PRIOR TO THE EVENT ONSET
     Route: 058
     Dates: start: 20240729, end: 20240729
  9. EPCORITAMAB [Suspect]
     Active Substance: EPCORITAMAB
     Dosage: 48 MG, C4D1
     Route: 058
     Dates: start: 20241104, end: 20241104
  10. VINCRISTINE [Suspect]
     Active Substance: VINCRISTINE
     Indication: Diffuse large B-cell lymphoma stage IV
     Dosage: 1.4 MG/M2, 1Q3W (RECOMMENDED CAP OF 2 MG),AS A PART OF R-CHOP REGIMEN, C1D1 - C3D1
     Route: 042
     Dates: start: 20240617, end: 20240910
  11. PREDNISONE [Suspect]
     Active Substance: PREDNISONE
     Indication: Diffuse large B-cell lymphoma stage IV
     Dosage: 100 MILLIGRAM, TOTAL
     Route: 048
     Dates: start: 20240617, end: 20240617
  12. PREDNISONE [Suspect]
     Active Substance: PREDNISONE
     Dosage: 100 MILLIGRAM, QD
     Route: 048
     Dates: start: 20240708, end: 20240708
  13. PREDNISONE [Suspect]
     Active Substance: PREDNISONE
     Dosage: 100 MILLIGRAM, TOTAL
     Route: 048
     Dates: start: 20240729, end: 20240729
  14. PREDNISONE [Suspect]
     Active Substance: PREDNISONE
     Dosage: 100 MILLIGRAM, QD
     Route: 048
     Dates: start: 20240618, end: 20240621
  15. PREDNISONE [Suspect]
     Active Substance: PREDNISONE
     Dosage: 100 MILLIGRAM, TOTAL
     Route: 048
     Dates: start: 20240709, end: 20240712
  16. PREDNISONE [Suspect]
     Active Substance: PREDNISONE
     Dosage: 100 MILLIGRAM, QD
     Route: 048
     Dates: start: 20240730, end: 20240802
  17. PREDNISONE [Suspect]
     Active Substance: PREDNISONE
     Dosage: 100 MILLIGRAM, QD
     Route: 048
     Dates: start: 20240819, end: 20240819
  18. PREDNISONE [Suspect]
     Active Substance: PREDNISONE
     Dosage: 100 MILLIGRAM, QD
     Route: 048
     Dates: start: 20240820, end: 20240823
  19. PREDNISONE [Suspect]
     Active Substance: PREDNISONE
     Dosage: 100 MILLIGRAM, TOTAL
     Route: 048
     Dates: start: 20240910, end: 20240910
  20. PREDNISONE [Suspect]
     Active Substance: PREDNISONE
     Dosage: 100 MILLIGRAM, TOTAL
     Route: 048
     Dates: start: 20240911, end: 20240914
  21. PREDNISONE [Suspect]
     Active Substance: PREDNISONE
     Dosage: 100 MILLIGRAM, TOTAL
     Route: 048
     Dates: start: 20241013, end: 20241013
  22. PREDNISONE [Suspect]
     Active Substance: PREDNISONE
     Dosage: 100 MILLIGRAM, TOTAL
     Route: 048
     Dates: start: 20241014, end: 20241017
  23. PROMETHAZINE [Concomitant]
     Active Substance: PROMETHAZINE HYDROCHLORIDE
     Indication: Premedication
     Dosage: 12.5 MG
     Route: 048
     Dates: start: 20240729, end: 20240729
  24. PROMETHAZINE [Concomitant]
     Active Substance: PROMETHAZINE HYDROCHLORIDE
     Dosage: 12.5 MG
     Dates: start: 20241013, end: 20241013
  25. ACETAMINOPHEN [Concomitant]
     Active Substance: ACETAMINOPHEN
     Indication: Premedication
     Dosage: 1000 MG
     Route: 048
     Dates: start: 20240729, end: 20240729
  26. ACETAMINOPHEN [Concomitant]
     Active Substance: ACETAMINOPHEN
     Dosage: 1000 MG
     Route: 048
     Dates: start: 20241013, end: 20241013
  27. ACETAMINOPHEN [Concomitant]
     Active Substance: ACETAMINOPHEN
     Dosage: UNK
     Route: 065
     Dates: start: 20241027, end: 20241027
  28. DEXAMETHASONE [Concomitant]
     Active Substance: DEXAMETHASONE
     Indication: Prophylaxis
     Dosage: 16 MG
     Route: 048
     Dates: start: 20240722, end: 20240725
  29. PREDNISONE [Concomitant]
     Active Substance: PREDNISONE
     Dosage: UNK
     Route: 065
     Dates: start: 20240726, end: 20240728
  30. PREDNISONE [Concomitant]
     Active Substance: PREDNISONE
     Dosage: UNK
     Route: 065
     Dates: start: 20240917, end: 20241012
  31. TAMSULOSIN HYDROCHLORIDE [Concomitant]
     Active Substance: TAMSULOSIN HYDROCHLORIDE
     Dosage: UNK, ONGOING
     Route: 065
     Dates: start: 20240530
  32. LEVOTHYROXINE [Concomitant]
     Active Substance: LEVOTHYROXINE
     Dosage: UNK, START DATE: DEC-2023, ONGOING
     Route: 065
  33. ALLOPURINOL [Concomitant]
     Active Substance: ALLOPURINOL
     Dosage: UNK
     Route: 065
     Dates: start: 20240528, end: 20240708
  34. FAMOTIDINE [Concomitant]
     Active Substance: FAMOTIDINE
     Dosage: UNK,ONGOING
     Route: 065
     Dates: start: 20240528
  35. Avilac [Concomitant]
     Dosage: UNK, ONGOING, START DATE: MAY-2024
     Route: 065
  36. SODIUM CHLORIDE [Concomitant]
     Active Substance: SODIUM CHLORIDE
     Dosage: UNK, 0.9 PERCENT
     Route: 065
     Dates: start: 20240715, end: 20240722
  37. SULFAMETHOXAZOLE\TRIMETHOPRIM [Concomitant]
     Active Substance: SULFAMETHOXAZOLE\TRIMETHOPRIM
     Dosage: UNK, ONGOING
     Route: 065
     Dates: start: 20240618
  38. FULPHILA [Concomitant]
     Active Substance: PEGFILGRASTIM-JMDB
     Dosage: UNK
     Route: 065
     Dates: start: 20240710, end: 20240731
  39. BERIPLEX HS [Concomitant]
     Active Substance: COAGULATION FACTOR IX HUMAN\COAGULATION FACTOR VII HUMAN\COAGULATION FACTOR X HUMAN\PROTEIN C\PROTEI
     Dosage: UNK
     Route: 065
     Dates: start: 20241023
  40. BISACODYL [Concomitant]
     Active Substance: BISACODYL
     Dosage: UNK, ONGOING
     Route: 065
     Dates: start: 20240619
  41. VANCOMYCIN [Concomitant]
     Active Substance: VANCOMYCIN
     Dosage: UNK, ONGOING
     Route: 065
     Dates: start: 20241021
  42. LACTATED RINGERS SOLUTION [Concomitant]
     Active Substance: CALCIUM CHLORIDE\POTASSIUM CHLORIDE\SODIUM CHLORIDE\SODIUM LACTATE
     Dosage: UNK, ONGOING
     Route: 065
     Dates: start: 20241021
  43. ELIQUIS [Concomitant]
     Active Substance: APIXABAN
     Dosage: UNK, ONGOING
     Route: 065
     Dates: start: 20241001
  44. POTASSIUM CHLORIDE [Concomitant]
     Active Substance: POTASSIUM CHLORIDE
     Dosage: UNK
     Route: 065
     Dates: start: 20240808, end: 20240808
  45. Azenil [Concomitant]
     Dosage: UNK
     Route: 065
     Dates: start: 20241024, end: 20241025
  46. FUROSEMIDE [Concomitant]
     Active Substance: FUROSEMIDE
     Dosage: UNK
     Route: 065
     Dates: start: 20241024, end: 20241024
  47. MAGNESIUM SULFATE [Concomitant]
     Active Substance: MAGNESIUM SULFATE
     Dosage: UNK
     Route: 065
     Dates: start: 20241026, end: 20241026
  48. DIPYRONE [Concomitant]
     Active Substance: DIPYRONE
     Dosage: UNK
     Route: 065
     Dates: start: 20241027, end: 20241027
  49. FULPHILA [Concomitant]
     Active Substance: PEGFILGRASTIM-JMDB
     Dosage: UNK
     Route: 065
     Dates: start: 20241015, end: 20241015
  50. AKYNZEO [Concomitant]
     Dosage: UNK
     Route: 065
     Dates: start: 20241013, end: 20241013

REACTIONS (14)
  - Haemorrhage urinary tract [Unknown]
  - Haematuria [Unknown]
  - Urinary tract obstruction [Unknown]
  - Febrile neutropenia [Recovered/Resolved]
  - Fatigue [Unknown]
  - Febrile neutropenia [Recovered/Resolved]
  - Sepsis [Not Recovered/Not Resolved]
  - Pyrexia [Recovered/Resolved]
  - Pyrexia [Recovered/Resolved]
  - Febrile neutropenia [Recovered/Resolved]
  - Septic shock [Recovered/Resolved]
  - Platelet count decreased [Unknown]
  - Anaemia [Unknown]
  - Diarrhoea [Unknown]

NARRATIVE: CASE EVENT DATE: 20240621
